FAERS Safety Report 11808087 (Version 1)
Quarter: 2015Q4

REPORT INFORMATION
  Report Type: Spontaneous
  Country: US (occurrence: US)
  Receive Date: 20151207
  Receipt Date: 20151207
  Transmission Date: 20160305
  Serious: No
  Sender: FDA-Public Use
  Company Number: US-ENDO PHARMACEUTICALS INC.-201504014

PATIENT
  Age: 72 Year
  Sex: Male
  Weight: 102.15 kg

DRUGS (5)
  1. GLYBURIDE. [Concomitant]
     Active Substance: GLYBURIDE
  2. METFORMIN [Concomitant]
     Active Substance: METFORMIN HYDROCHLORIDE
  3. TESTIM [Suspect]
     Active Substance: TESTOSTERONE
     Route: 062
     Dates: start: 20150330
  4. SIMVASTATIN. [Concomitant]
     Active Substance: SIMVASTATIN
  5. TAMSULOSIN [Concomitant]
     Active Substance: TAMSULOSIN

REACTIONS (2)
  - Chromaturia [Not Recovered/Not Resolved]
  - Underdose [Not Recovered/Not Resolved]

NARRATIVE: CASE EVENT DATE: 20150330
